FAERS Safety Report 20347085 (Version 1)
Quarter: 2022Q1

REPORT INFORMATION
  Report Type: Spontaneous
  Country: US (occurrence: None)
  Receive Date: 20220118
  Receipt Date: 20220118
  Transmission Date: 20220423
  Serious: Yes (Hospitalization)
  Sender: FDA-Public Use
  Company Number: None

PATIENT
  Age: 73 Year
  Sex: Male

DRUGS (1)
  1. APIXABAN [Suspect]
     Active Substance: APIXABAN
     Indication: Pulmonary embolism
     Dosage: 5MG BID PO?
     Route: 048
     Dates: start: 20200211

REACTIONS (7)
  - Haemorrhage [None]
  - Anaemia [None]
  - Cerebrovascular accident [None]
  - Haematuria [None]
  - Ureteric obstruction [None]
  - Acute kidney injury [None]
  - Therapy cessation [None]

NARRATIVE: CASE EVENT DATE: 20220104
